FAERS Safety Report 14991328 (Version 1)
Quarter: 2018Q2

REPORT INFORMATION
  Report Type: Spontaneous
  Country: GB (occurrence: FR)
  Receive Date: 20180608
  Receipt Date: 20180608
  Transmission Date: 20180711
  Serious: Yes (Other)
  Sender: FDA-Public Use
  Company Number: FR-FRESENIUS KABI-FK201806595

PATIENT
  Age: 55 Year
  Sex: Female

DRUGS (12)
  1. SERESTA 20 MG, COMPRIM? [Concomitant]
     Dates: start: 20180327
  2. LEVOTHYROX 125 MICROGRAMMES, COMPRIM? S?CABLE [Concomitant]
     Active Substance: LEVOTHYROXINE SODIUM
     Indication: HYPOTHYROIDISM
     Route: 048
  3. SEROPLEX 20 MG, COMPRIM? PELLICUL? S?CABLE [Concomitant]
     Active Substance: ESCITALOPRAM OXALATE
     Indication: DEPRESSION
     Route: 048
  4. DIFFU K, G?LULE [Concomitant]
     Active Substance: POTASSIUM CHLORIDE
     Indication: HYPOKALAEMIA
     Route: 048
     Dates: start: 20180329, end: 20180402
  5. PARACETAMOL [Concomitant]
     Active Substance: ACETAMINOPHEN
     Route: 048
     Dates: start: 20180423
  6. LINEZOLID KABI [Suspect]
     Active Substance: LINEZOLID
     Indication: PNEUMONIA ASPIRATION
     Dosage: 1200MG
     Route: 042
     Dates: start: 20180321, end: 20180402
  7. MERONEM 1 G, POUDRE POUR SOLUTION INJECTABLE (I.V.) [Suspect]
     Active Substance: MEROPENEM
     Indication: PNEUMONIA ASPIRATION
     Dates: start: 20180327, end: 20180401
  8. AMLOR 5 MG, G?LULE [Suspect]
     Active Substance: AMLODIPINE BESYLATE
     Indication: HYPERTENSION
     Route: 048
     Dates: start: 20180325, end: 20180402
  9. DUPHALAC, SOLUTION BUVABLE EN SACHET DOSE [Concomitant]
     Route: 048
     Dates: start: 20180326, end: 20180403
  10. INEXIUM 40 MG, POUDRE POUR SOLUTION INJECTABLE OU POUR PERFUSION [Concomitant]
     Route: 042
     Dates: start: 20180325, end: 20180412
  11. VENLAFAXINE [Concomitant]
     Active Substance: VENLAFAXINE HYDROCHLORIDE
     Indication: DEPRESSION
     Route: 048
  12. ACUPAN, COMPRIM? [Concomitant]
     Indication: PAIN
     Route: 048
     Dates: start: 20180329, end: 20180329

REACTIONS (1)
  - Pancreatitis acute [Recovered/Resolved]

NARRATIVE: CASE EVENT DATE: 20180329
